FAERS Safety Report 8078730-2 (Version None)
Quarter: 2012Q1

REPORT INFORMATION
  Report Type: 
  Country: None (occurrence: None)
  Receive Date: 20120124
  Receipt Date: 20120109
  Transmission Date: 20120608
  Serious: Yes (Other)
  Sender: FDA-Public Use
  Company Number: AUR-APL-2012-00609

PATIENT
  Age: 51 Year
  Sex: Male

DRUGS (2)
  1. BUPIVACAINE HCL [Suspect]
     Indication: PAIN
     Dosage: (770 MG, TOTAL) ,
  2. SIMVASTATIN [Suspect]
     Indication: PRODUCT USED FOR UNKNOWN INDICATION
     Dosage: (20 MG) ,

REACTIONS (17)
  - LIVER FUNCTION TEST ABNORMAL [None]
  - HEPATITIS [None]
  - FATIGUE [None]
  - HEPATIC FIBROSIS [None]
  - EOSINOPHILIA [None]
  - HERNIA [None]
  - HYPERHIDROSIS [None]
  - PRURITUS [None]
  - HYPERSENSITIVITY [None]
  - HYPOTENSION [None]
  - FAECES PALE [None]
  - FULL BLOOD COUNT ABNORMAL [None]
  - CHOLESTASIS [None]
  - HEPATOTOXICITY [None]
  - DIZZINESS [None]
  - CHROMATURIA [None]
  - DRUG INTERACTION [None]
